FAERS Safety Report 5728976-0 (Version None)
Quarter: 2008Q2

REPORT INFORMATION
  Report Type: 
  Country: None (occurrence: None)
  Receive Date: 20080430
  Receipt Date: 20080228
  Transmission Date: 20081010
  Serious: No
  Sender: FDA-Public Use
  Company Number: 2008PV034397

PATIENT
  Sex: Male

DRUGS (3)
  1. SYMLINPEN 120 (PRAMLINTIDE ACETATE) PEN-INJECTION (1.0 MG/ML) [Suspect]
     Indication: TYPE 2 DIABETES MELLITUS
     Dosage: TID;SC
     Route: 058
  2. SYMLIN [Suspect]
     Indication: TYPE 2 DIABETES MELLITUS
     Dosage: 60 MCG;TID;SC
     Route: 058
     Dates: start: 20080101, end: 20080226
  3. LANTUS [Concomitant]

REACTIONS (2)
  - DRUG DISPENSING ERROR [None]
  - DRUG PRESCRIBING ERROR [None]
